FAERS Safety Report 7199726-9 (Version None)
Quarter: 2010Q4

REPORT INFORMATION
  Report Type: 
  Country: None (occurrence: None)
  Receive Date: 20101228
  Receipt Date: 20101216
  Transmission Date: 20110411
  Serious: Yes (Hospitalization)
  Sender: FDA-Public Use
  Company Number: US-ROCHE-678074

PATIENT
  Sex: Female
  Weight: 66.5 kg

DRUGS (28)
  1. TOCILIZUMAB [Suspect]
     Indication: RHEUMATOID ARTHRITIS
     Route: 042
     Dates: start: 20091102, end: 20091202
  2. TOCILIZUMAB [Suspect]
     Route: 042
     Dates: start: 20091202
  3. TOCILIZUMAB [Suspect]
     Dosage: LAST DOSE PRIOR TO SAE WAS GIVEN ON 28 JANUARY 2010.
     Route: 042
     Dates: start: 20100128
  4. XOPENEX [Concomitant]
     Indication: ASTHMA
     Dosage: AS NECESSARY
     Route: 055
     Dates: start: 20080101
  5. SINGULAIR [Concomitant]
     Indication: ASTHMA
     Route: 048
     Dates: start: 20060101
  6. SPIRIVA [Concomitant]
     Indication: ASTHMA
     Route: 048
     Dates: start: 20060101
  7. ADVAIR [Concomitant]
     Indication: ASTHMA
     Dosage: DOSE : 1 PUFF
     Route: 055
     Dates: start: 20060101
  8. ZOLOFT [Concomitant]
     Indication: DEPRESSION
     Dosage: FREQUENCY: EVERYDAY.
     Route: 048
     Dates: start: 20030101
  9. FEXOFENADINE HCL [Concomitant]
     Indication: SEASONAL ALLERGY
     Dosage: FREQUENCY: EVERYDAY.
     Route: 048
     Dates: start: 20040101
  10. ASTELIN [Concomitant]
     Indication: SEASONAL ALLERGY
     Route: 055
     Dates: start: 20060101
  11. NASONEX [Concomitant]
     Indication: SEASONAL ALLERGY
     Dosage: FREQUENCY: EVERYDAY. (100) EQUALS TO II SPRAYS.
     Route: 055
     Dates: start: 20060101
  12. WELLBUTRIN [Concomitant]
     Indication: DEPRESSION
     Route: 048
     Dates: start: 20030101
  13. ALPRAZOLAM [Concomitant]
     Indication: ANXIETY
     Dosage: DOSE: 0.5MG FREQUENCY: AS NECESSARY .
     Route: 048
     Dates: start: 19990101
  14. AMBIEN [Concomitant]
     Indication: INSOMNIA
     Dosage: FREQUENCY: EVERYDAY.
     Route: 048
     Dates: start: 20090501
  15. FLEXERIL [Concomitant]
     Dosage: DOSE: 10 MG AS NECESSARY.
     Route: 048
     Dates: start: 20061201
  16. LIDODERM [Concomitant]
     Indication: PAIN
     Route: 061
     Dates: start: 20061201
  17. ACYCLOVIR [Concomitant]
     Dosage: DOSE: 200 MG AS NECESSARY.
     Route: 048
     Dates: start: 20000101
  18. CREO RECTAL [Concomitant]
     Indication: CONSTIPATION
     Dosage: TDD: 1 SUPP, FREQUENCY: AS NECESSARY.
     Route: 054
     Dates: start: 19950101
  19. TUMS [Concomitant]
     Dosage: DOSE: 1 DOSE FORM, FREQUENCY: AS NECESSARY.
     Route: 048
     Dates: start: 19950101
  20. PEPTO BISMOL [Concomitant]
     Dosage: DOSE: 1 TSP AS NECESSARY.
     Route: 048
     Dates: start: 19900101
  21. FOLIC ACID [Concomitant]
     Dosage: FREQUENCY: EVERYDAY.
     Route: 048
     Dates: start: 20091010
  22. METHOTREXATE [Concomitant]
     Route: 048
     Dates: start: 19960101, end: 20060201
  23. METHOTREXATE [Concomitant]
     Route: 048
     Dates: start: 20100114
  24. METHOTREXATE [Concomitant]
     Route: 048
     Dates: start: 20100203
  25. PREDNISONE [Concomitant]
     Dosage: FREQUENCY: EVERYDAY.
     Route: 048
     Dates: start: 20021230
  26. AVELOX [Concomitant]
     Indication: PNEUMONIA
     Dosage: FREQUENCY: EVERYDAY.
     Route: 048
     Dates: start: 20100102, end: 20100109
  27. AVELOX [Concomitant]
     Dosage: FREQUENCY: EVERYDAY.
     Route: 048
     Dates: start: 20100222, end: 20100301
  28. ZITHROMAX [Concomitant]
     Dosage: FREQUENCY: EVERYDAY.
     Route: 048
     Dates: start: 20100219, end: 20100221

REACTIONS (2)
  - CHRONIC OBSTRUCTIVE PULMONARY DISEASE [None]
  - PNEUMONIA [None]
